FAERS Safety Report 17549828 (Version 3)
Quarter: 2020Q2

REPORT INFORMATION
  Report Type: Spontaneous
  Country: US (occurrence: US)
  Receive Date: 20200317
  Receipt Date: 20200401
  Transmission Date: 20200713
  Serious: Yes (Other)
  Sender: FDA-Public Use
  Company Number: US-JNJFOC-20200320252

PATIENT
  Sex: Female
  Weight: 59.02 kg

DRUGS (7)
  1. MELATONIN [Concomitant]
     Active Substance: MELATONIN
  2. TRAZODONE [Concomitant]
     Active Substance: TRAZODONE HYDROCHLORIDE
  3. CYMBALTA [Concomitant]
     Active Substance: DULOXETINE HYDROCHLORIDE
  4. INVEGA TRINZA [Suspect]
     Active Substance: PALIPERIDONE PALMITATE
     Indication: SCHIZOPHRENIA
     Route: 030
     Dates: start: 201912
  5. INVEGA TRINZA [Suspect]
     Active Substance: PALIPERIDONE PALMITATE
  6. INVEGA TRINZA [Suspect]
     Active Substance: PALIPERIDONE PALMITATE
  7. HYDROXYZINE [Concomitant]
     Active Substance: HYDROXYZINE HYDROCHLORIDE
     Indication: ANXIETY
     Dates: start: 2020

REACTIONS (2)
  - Therapeutic response shortened [Unknown]
  - Schizophrenia [Not Recovered/Not Resolved]

NARRATIVE: CASE EVENT DATE: 2020
